FAERS Safety Report 10610334 (Version 1)
Quarter: 2014Q4

REPORT INFORMATION
  Report Type: Spontaneous
  Country: US (occurrence: US)
  Receive Date: 20141126
  Receipt Date: 20141126
  Transmission Date: 20150529
  Serious: Yes (Hospitalization, Other)
  Sender: FDA-Public Use
  Company Number: US-ASTRAZENECA-2014SE87799

PATIENT
  Age: 80 Year
  Sex: Male
  Weight: 95.3 kg

DRUGS (13)
  1. LIPITOR [Suspect]
     Active Substance: ATORVASTATIN CALCIUM
     Indication: BLOOD CHOLESTEROL ABNORMAL
     Route: 065
  2. TIKOSYN [Suspect]
     Active Substance: DOFETILIDE
     Indication: ARRHYTHMIA
     Dosage: 500 MCG, ONE IN MORNING AND ONE IN NIGHT
     Route: 048
     Dates: start: 2009
  3. LEVOTHYROXINE [Concomitant]
     Active Substance: LEVOTHYROXINE
  4. COQ 10 [Concomitant]
     Active Substance: UBIDECARENONE
  5. DOXAZOSIN [Concomitant]
     Active Substance: DOXAZOSIN\DOXAZOSIN MESYLATE
  6. WARFARIN [Concomitant]
     Active Substance: WARFARIN
  7. LUTEINA [Concomitant]
  8. FISH OIL [Concomitant]
     Active Substance: FISH OIL
  9. CRESTOR [Suspect]
     Active Substance: ROSUVASTATIN CALCIUM
     Indication: BLOOD CHOLESTEROL ABNORMAL
     Route: 048
  10. ZEAXANTHINE [Concomitant]
  11. RAMIPRIL. [Concomitant]
     Active Substance: RAMIPRIL
  12. PRESERVISION [Concomitant]
  13. SPIRONOLACTONE. [Concomitant]
     Active Substance: SPIRONOLACTONE

REACTIONS (3)
  - Muscle rupture [Unknown]
  - Macular degeneration [Not Recovered/Not Resolved]
  - Muscular weakness [Not Recovered/Not Resolved]

NARRATIVE: CASE EVENT DATE: 2012
